FAERS Safety Report 19899692 (Version 1)
Quarter: 2021Q3

REPORT INFORMATION
  Report Type: Spontaneous
  Country: US (occurrence: US)
  Receive Date: 20210929
  Receipt Date: 20210929
  Transmission Date: 20211014
  Serious: No
  Sender: FDA-Public Use
  Company Number: US-ASTRAZENECA-2021A734270

PATIENT
  Age: 959 Month
  Sex: Female
  Weight: 40.8 kg

DRUGS (1)
  1. SYMBICORT [Suspect]
     Active Substance: BUDESONIDE\FORMOTEROL FUMARATE DIHYDRATE
     Indication: CHRONIC OBSTRUCTIVE PULMONARY DISEASE
     Dosage: 160/4.5 MCG 120 INHALATIONS
     Route: 055

REACTIONS (5)
  - Off label use [Unknown]
  - Ocular hyperaemia [Unknown]
  - Oral mucosal erythema [Unknown]
  - Oral pruritus [Unknown]
  - Pruritus [Unknown]

NARRATIVE: CASE EVENT DATE: 202107
